FAERS Safety Report 4269154-4 (Version None)
Quarter: 2004Q1

REPORT INFORMATION
  Report Type: 
  Country: None (occurrence: None)
  Receive Date: 20040108
  Receipt Date: 20031218
  Transmission Date: 20041129
  Serious: Yes (Hospitalization)
  Sender: FDA-Public Use
  Company Number: USA-2003-0011049

PATIENT
  Age: 14 Year
  Sex: Male

DRUGS (3)
  1. CEFDITOREN PIVOXIL (SIMILAR TO NDA 21-222) (CEFDITOREN PIVOXIL) [Suspect]
     Indication: UPPER RESPIRATORY TRACT INFLAMMATION
     Dosage: 300 MG, DAILY, ORAL
     Route: 048
     Dates: end: 20031020
  2. LOXONIN (LOXOPROFEN SODIUM) [Concomitant]
  3. PL GRAN. (PROMETHAZINE METHYLENE DISALICYLATE, SALICYLAMIDE) [Concomitant]

REACTIONS (1)
  - ANAPHYLACTOID REACTION [None]
